FAERS Safety Report 6640473-7 (Version None)
Quarter: 2010Q1

REPORT INFORMATION
  Report Type: 
  Country: None (occurrence: None)
  Receive Date: 20100318
  Receipt Date: 20100309
  Transmission Date: 20100710
  Serious: Yes (Congenital Anomaly)
  Sender: FDA-Public Use
  Company Number: GB-PFIZER INC-2010030033

PATIENT
  Sex: Female
  Weight: 1.9 kg

DRUGS (2)
  1. DEPO-PROVERA [Suspect]
     Indication: DRUG USE FOR UNKNOWN INDICATION
     Route: 064
  2. HUMAN PAPILLOMAVIRUS VACCINE [Suspect]
     Indication: PROPHYLAXIS
     Dosage: 1 DF, 1X/DAY
     Route: 064
     Dates: start: 20090727, end: 20090727

REACTIONS (4)
  - CLEFT PALATE [None]
  - DRUG EXPOSURE DURING PREGNANCY [None]
  - PREMATURE BABY [None]
  - SEPSIS [None]
